FAERS Safety Report 6216941-9 (Version None)
Quarter: 2009Q2

REPORT INFORMATION
  Report Type: 
  Country: None (occurrence: None)
  Receive Date: 20090604
  Receipt Date: 20090520
  Transmission Date: 20091009
  Serious: Yes (Other)
  Sender: FDA-Public Use
  Company Number: US-000306

PATIENT
  Sex: Female

DRUGS (4)
  1. SOMATROPIN [Suspect]
     Indication: MYALGIA
     Dates: start: 20080401, end: 20081001
  2. SOMATROPIN [Suspect]
     Indication: MYALGIA
     Dates: start: 20090201
  3. THYROID TAB [Concomitant]
  4. CORTISONE [Concomitant]

REACTIONS (3)
  - BURNING SENSATION [None]
  - CHEST DISCOMFORT [None]
  - DRUG HYPERSENSITIVITY [None]
